FAERS Safety Report 10728497 (Version 1)
Quarter: 2015Q1

REPORT INFORMATION
  Report Type: Spontaneous
  Country: US (occurrence: US)
  Receive Date: 20150122
  Receipt Date: 20150122
  Transmission Date: 20150721
  Serious: No
  Sender: FDA-Public Use
  Company Number: US-009507513-1501USA004305

PATIENT
  Age: 77 Year
  Sex: Female

DRUGS (3)
  1. ZOCOR [Suspect]
     Active Substance: SIMVASTATIN
     Dosage: 20 MG/UNSPECIFIED FREQUENCY
     Route: 048
     Dates: start: 20141203
  2. ATENOLOL. [Concomitant]
     Active Substance: ATENOLOL
     Indication: HYPERTENSION
  3. QUINAPRIL HYDROCHLORIDE. [Concomitant]
     Active Substance: QUINAPRIL HYDROCHLORIDE

REACTIONS (3)
  - Drug administration error [Unknown]
  - Wrong technique in drug usage process [Unknown]
  - Arthralgia [Unknown]

NARRATIVE: CASE EVENT DATE: 20141203
